FAERS Safety Report 9806716 (Version 1)
Quarter: 2014Q1

REPORT INFORMATION
  Report Type: Spontaneous
  Country: None (occurrence: US)
  Receive Date: 20140109
  Receipt Date: 20140109
  Transmission Date: 20141002
  Serious: No
  Sender: FDA-Public Use
  Company Number: US-ENDO PHARMACEUTICALS INC.-FORT20130379

PATIENT
  Sex: Male
  Weight: 118.04 kg

DRUGS (1)
  1. FORTESTA [Suspect]
     Indication: PRODUCT USED FOR UNKNOWN INDICATION
     Route: 061
     Dates: start: 201307

REACTIONS (4)
  - Application site pain [Unknown]
  - Drug administered at inappropriate site [Unknown]
  - Incorrect product storage [Unknown]
  - Application site rash [Unknown]
